FAERS Safety Report 4514697-9 (Version None)
Quarter: 2004Q4

REPORT INFORMATION
  Report Type: 
  Country: None (occurrence: None)
  Receive Date: 20041126
  Receipt Date: 20041115
  Transmission Date: 20050328
  Serious: Yes (Disabling)
  Sender: FDA-Public Use
  Company Number: 2004GB02742

PATIENT
  Age: 78 Year
  Sex: Male
  Weight: 75 kg

DRUGS (5)
  1. GOSERELIN [Suspect]
     Indication: PROSTATE CANCER
     Dosage: 10.8 MG Q3MO SQ
     Route: 058
     Dates: start: 20040801
  2. BISOPROLOL FUMARATE [Concomitant]
  3. ALLOPURINOL [Concomitant]
  4. ATORVASTATIN [Concomitant]
  5. NIFEDIPINE [Concomitant]

REACTIONS (1)
  - HALLUCINATION, VISUAL [None]
